FAERS Safety Report 18495835 (Version 2)
Quarter: 2020Q4

REPORT INFORMATION
  Report Type: Spontaneous
  Country: FR (occurrence: FR)
  Receive Date: 20201112
  Receipt Date: 20201216
  Transmission Date: 20210114
  Serious: Yes (Hospitalization, Other)
  Sender: FDA-Public Use
  Company Number: FR-MYLANLABS-2020M1094120

PATIENT
  Age: 72 Year
  Sex: Female

DRUGS (8)
  1. MITOXANTRONE [Suspect]
     Active Substance: MITOXANTRONE HYDROCHLORIDE
     Indication: DIFFUSE LARGE B-CELL LYMPHOMA STAGE II
     Dosage: AS A PART OF PMITCEBO REGIMENUNK UNK, CYCLE
     Route: 065
     Dates: start: 201212
  2. RITUXIMAB. [Suspect]
     Active Substance: RITUXIMAB
     Indication: DIFFUSE LARGE B-CELL LYMPHOMA STAGE II
     Dosage: UNK UNK, CYCLE, SIX 21-DAY CYCLES
     Route: 065
     Dates: start: 201212
  3. RITUXIMAB. [Suspect]
     Active Substance: RITUXIMAB
     Dosage: UNK UNK, MONTHLY, Q4W, CONSOLIDATION TREATMENT
     Route: 065
     Dates: end: 201303
  4. VINCRISTINE [Suspect]
     Active Substance: VINCRISTINE
     Indication: DIFFUSE LARGE B-CELL LYMPHOMA STAGE II
     Dosage: UNK UNK, CYCLE, AS A PART OF PMITCEBO REGIMEN
     Route: 065
     Dates: start: 201212
  5. CYCLOPHOSPHAMIDE. [Suspect]
     Active Substance: CYCLOPHOSPHAMIDE
     Indication: DIFFUSE LARGE B-CELL LYMPHOMA STAGE II
     Dosage: UNK UNK, CYCLE, AS A PART OF PMITCEBO REGIMEN
     Route: 065
     Dates: start: 201212
  6. ETOPOSIDE. [Suspect]
     Active Substance: ETOPOSIDE
     Indication: DIFFUSE LARGE B-CELL LYMPHOMA STAGE II
     Dosage: UNK, CYCLE, AS A PART OF PMITCEBO REGIMEN
     Route: 065
     Dates: start: 201212
  7. BLEOMYCIN [Suspect]
     Active Substance: BLEOMYCIN SULFATE
     Indication: DIFFUSE LARGE B-CELL LYMPHOMA STAGE II
     Dosage: UNK UNK, CYCLE, AS A PART OF PMITCEBO REGIMEN
     Route: 065
     Dates: start: 201212
  8. METHYLPREDNISOLONE. [Suspect]
     Active Substance: METHYLPREDNISOLONE
     Indication: DIFFUSE LARGE B-CELL LYMPHOMA STAGE II
     Dosage: AS A PART OF PMITCEBO REGIMENUNK, CYCLE
     Route: 065
     Dates: start: 201212

REACTIONS (4)
  - Fall [Unknown]
  - Normocytic anaemia [Unknown]
  - B precursor type acute leukaemia [Recovering/Resolving]
  - Thrombocytopenia [Unknown]

NARRATIVE: CASE EVENT DATE: 2013
